FAERS Safety Report 9301499 (Version 3)
Quarter: 2013Q3

REPORT INFORMATION
  Report Type: Spontaneous
  Country: DE (occurrence: DE)
  Receive Date: 20130521
  Receipt Date: 20130826
  Transmission Date: 20140515
  Serious: Yes (Hospitalization)
  Sender: FDA-Public Use
  Company Number: DE-TEVA-404375GER

PATIENT
  Age: 82 Year
  Sex: Female

DRUGS (2)
  1. OFLOXACIN-RATIOPHARM 400 MG FILMTABLETTEN [Suspect]
     Indication: CYSTITIS
     Dosage: 800 MILLIGRAM DAILY;
     Route: 048
     Dates: start: 20121025
  2. ROXITHROMYCIN [Suspect]
     Indication: INFLUENZA LIKE ILLNESS
     Dates: start: 2012, end: 2012

REACTIONS (13)
  - Polymyalgia rheumatica [Recovering/Resolving]
  - Oedema peripheral [Unknown]
  - Pharyngitis [Recovered/Resolved]
  - Cough [Recovered/Resolved]
  - Myositis [Recovering/Resolving]
  - Mobility decreased [Recovering/Resolving]
  - Dysstasia [Recovering/Resolving]
  - Walking disability [Recovering/Resolving]
  - Pain [Recovering/Resolving]
  - Blood count abnormal [Recovering/Resolving]
  - Inflammatory marker increased [Recovering/Resolving]
  - White blood cell disorder [Recovering/Resolving]
  - Joint stiffness [Recovering/Resolving]
